FAERS Safety Report 7356256-9 (Version None)
Quarter: 2011Q1

REPORT INFORMATION
  Report Type: 
  Country: None (occurrence: None)
  Receive Date: 20110316
  Receipt Date: 20110304
  Transmission Date: 20110831
  Serious: Yes (Other)
  Sender: FDA-Public Use
  Company Number: ES-EISAI INC-E2090-01513-SPO-ES

PATIENT
  Age: 22 Year
  Sex: Female
  Weight: 64 kg

DRUGS (2)
  1. ZONEGRAN [Suspect]
     Indication: GENERALISED NON-CONVULSIVE EPILEPSY
     Dosage: 300 MG
     Route: 048
     Dates: start: 20090407, end: 20101220
  2. TOPAMAX [Concomitant]
     Indication: GENERALISED NON-CONVULSIVE EPILEPSY
     Dates: start: 20101220

REACTIONS (1)
  - THROMBOCYTOPENIA [None]
